FAERS Safety Report 7730854-2 (Version None)
Quarter: 2011Q3

REPORT INFORMATION
  Report Type: 
  Country: None (occurrence: None)
  Receive Date: 20110906
  Receipt Date: 20110829
  Transmission Date: 20111222
  Serious: Yes (Death, Hospitalization)
  Sender: FDA-Public Use
  Company Number: DE-ACTELION-A-US2011-53418

PATIENT
  Sex: Male

DRUGS (1)
  1. VENTAVIS [Suspect]
     Indication: PULMONARY ARTERIAL HYPERTENSION
     Dosage: 5 ?G, QID
     Route: 065
     Dates: start: 20110610

REACTIONS (1)
  - DEATH [None]
